FAERS Safety Report 7901881-7 (Version None)
Quarter: 2011Q4

REPORT INFORMATION
  Report Type: 
  Country: None (occurrence: None)
  Receive Date: 20111108
  Receipt Date: 20111101
  Transmission Date: 20120403
  Serious: Yes (Hospitalization)
  Sender: FDA-Public Use
  Company Number: JP-MERCK-1111USA00589

PATIENT
  Age: 8 Year
  Sex: Female

DRUGS (6)
  1. RAPIACTA [Concomitant]
     Route: 041
  2. MUCOSIL-10 [Concomitant]
     Route: 048
  3. SINGULAIR [Suspect]
     Indication: ASTHMA
     Dosage: DIVIDED DOSE FREQUENCY UNKNOWN
     Route: 048
  4. MUCODYNE [Concomitant]
     Route: 048
  5. FLOMOX [Concomitant]
     Route: 048
  6. INAVIR [Concomitant]
     Route: 055
     Dates: start: 20110310, end: 20110310

REACTIONS (2)
  - SLEEP TERROR [None]
  - PYREXIA [None]
